FAERS Safety Report 7289920-0 (Version None)
Quarter: 2011Q1

REPORT INFORMATION
  Report Type: 
  Country: None (occurrence: None)
  Receive Date: 20110214
  Receipt Date: 20110201
  Transmission Date: 20110831
  Serious: Yes (Other)
  Sender: FDA-Public Use
  Company Number: FR-ELI_LILLY_AND_COMPANY-FR201102000859

PATIENT
  Age: 56 Year
  Sex: Female

DRUGS (1)
  1. OPTRUMA [Suspect]
     Dates: start: 20101030

REACTIONS (4)
  - GASTROINTESTINAL DISORDER [None]
  - THIRST [None]
  - PANCREATITIS [None]
  - HEPATITIS [None]
